FAERS Safety Report 16074462 (Version 1)
Quarter: 2019Q1

REPORT INFORMATION
  Report Type: Spontaneous
  Country: US (occurrence: US)
  Receive Date: 20190314
  Receipt Date: 20190314
  Transmission Date: 20190418
  Serious: No
  Sender: FDA-Public Use
  Company Number: US-PFIZER INC-2019104089

PATIENT
  Age: 67 Year
  Sex: Female
  Weight: 95.25 kg

DRUGS (1)
  1. KETAMINE HCL [Suspect]
     Active Substance: KETAMINE HYDROCHLORIDE
     Dosage: UNK
     Dates: start: 20190226

REACTIONS (4)
  - Emotional disorder [Unknown]
  - Somnolence [Unknown]
  - Crying [Unknown]
  - Depressed mood [Unknown]

NARRATIVE: CASE EVENT DATE: 20190226
